FAERS Safety Report 24883195 (Version 6)
Quarter: 2025Q2

REPORT INFORMATION
  Report Type: Spontaneous
  Country: JP (occurrence: JP)
  Receive Date: 20250124
  Receipt Date: 20250421
  Transmission Date: 20250717
  Serious: Yes (Hospitalization, Other)
  Sender: JOHNSON AND JOHNSON
  Company Number: JP-JNJFOC-20250151602

PATIENT
  Age: 37 Year
  Sex: Female

DRUGS (8)
  1. OPSUMIT [Suspect]
     Active Substance: MACITENTAN
     Indication: Right-to-left cardiac shunt
     Route: 048
  2. OPSUMIT [Suspect]
     Active Substance: MACITENTAN
     Indication: Pulmonary arterial hypertension
  3. UPTRAVI [Suspect]
     Active Substance: SELEXIPAG
     Indication: Right-to-left cardiac shunt
     Route: 048
  4. ADCIRCA [Concomitant]
     Active Substance: TADALAFIL
     Indication: Product used for unknown indication
     Route: 065
  5. OXYGEN [Concomitant]
     Active Substance: OXYGEN
     Indication: Right-to-left cardiac shunt
     Route: 065
  6. OXYGEN [Concomitant]
     Active Substance: OXYGEN
     Route: 065
  7. OXYGEN [Concomitant]
     Active Substance: OXYGEN
     Route: 065
  8. BERAPROST SODIUM [Concomitant]
     Active Substance: BERAPROST SODIUM
     Indication: Right-to-left cardiac shunt
     Route: 065

REACTIONS (13)
  - Depressed level of consciousness [Unknown]
  - Pallor [Unknown]
  - Hypoxia [Recovered/Resolved]
  - Cerebral infarction [Unknown]
  - Diarrhoea [Unknown]
  - Flushing [Unknown]
  - Palpitations [Unknown]
  - Abdominal pain [Unknown]
  - Heavy menstrual bleeding [Unknown]
  - Anaemia [Unknown]
  - Platelet count decreased [Unknown]
  - Pyrexia [Unknown]
  - Headache [Unknown]
